FAERS Safety Report 24019150 (Version 1)
Quarter: 2024Q2

REPORT INFORMATION
  Report Type: Spontaneous
  Country: CA (occurrence: CA)
  Receive Date: 20240627
  Receipt Date: 20240627
  Transmission Date: 20240716
  Serious: Yes (Other)
  Sender: FDA-Public Use
  Company Number: CA-PFIZER INC-202400198974

PATIENT
  Age: 81 Year
  Sex: Male

DRUGS (9)
  1. VYNDAMAX [Suspect]
     Active Substance: TAFAMIDIS
     Indication: Cardiac amyloidosis
     Dosage: 61 MG, 1X/DAY
     Route: 048
     Dates: start: 2023
  2. PANTOPRAZOLE SODIUM [Concomitant]
     Active Substance: PANTOPRAZOLE SODIUM
     Dosage: 40 MG
  3. ALDACTONE [Concomitant]
     Active Substance: SPIRONOLACTONE
     Dosage: 25 MG
  4. APIXABAN [Concomitant]
     Active Substance: APIXABAN
     Dosage: 5 MG, 2X/DAY
  5. QUINAPRIL [Concomitant]
     Active Substance: QUINAPRIL
     Dosage: 20 MG
  6. TAMSULOSIN [Concomitant]
     Active Substance: TAMSULOSIN
     Dosage: 0.4 MG
  7. OXAZEPAM [Concomitant]
     Active Substance: OXAZEPAM
     Dosage: 15 MG
  8. CELEBREX [Concomitant]
     Active Substance: CELECOXIB
     Dosage: 100 MG
  9. FUROSEMIDE [Concomitant]
     Active Substance: FUROSEMIDE
     Dosage: 80 MG

REACTIONS (4)
  - Limb injury [Unknown]
  - Wound infection staphylococcal [Not Recovered/Not Resolved]
  - Pustule [Unknown]
  - Eye infection staphylococcal [Unknown]

NARRATIVE: CASE EVENT DATE: 20240529
